FAERS Safety Report 11236159 (Version 1)
Quarter: 2015Q3

REPORT INFORMATION
  Report Type: Spontaneous
  Country: US (occurrence: US)
  Receive Date: 20150702
  Receipt Date: 20150702
  Transmission Date: 20151125
  Serious: No
  Sender: FDA-Public Use
  Company Number: US-TAKEDA-2015TUS003896

PATIENT
  Sex: Female

DRUGS (4)
  1. VITAMIN B12 [Concomitant]
     Active Substance: CYANOCOBALAMIN
     Indication: OVERWEIGHT
     Dosage: UNK
  2. CONTRAVE [Suspect]
     Active Substance: BUPROPION HYDROCHLORIDE\NALTREXONE HYDROCHLORIDE
     Indication: OVERWEIGHT
     Dosage: UNK, QAM
     Route: 048
     Dates: start: 2015, end: 2015
  3. LIPOTROPE [Suspect]
     Active Substance: DIETARY SUPPLEMENT
  4. LIPOTROPE INJECTION [Interacting]
     Active Substance: CHOLINE BITARTRATE\INOSITOL\RACEMETHIONINE
     Indication: OVERWEIGHT
     Dosage: UNK
     Route: 050

REACTIONS (2)
  - Blood pressure increased [Recovered/Resolved]
  - Drug interaction [Recovered/Resolved]

NARRATIVE: CASE EVENT DATE: 2015
